FAERS Safety Report 19515548 (Version 2)
Quarter: 2021Q3

REPORT INFORMATION
  Report Type: Report from Study
  Country: DO (occurrence: DO)
  Receive Date: 20210710
  Receipt Date: 20210805
  Transmission Date: 20211014
  Serious: Yes (Other)
  Sender: FDA-Public Use
  Company Number: NVSC2021DO150261

PATIENT
  Age: 60 Year
  Sex: Female

DRUGS (1)
  1. SCAPHO [Suspect]
     Active Substance: SECUKINUMAB
     Indication: PSORIATIC ARTHROPATHY
     Dosage: 150 MG, QMO
     Route: 058
     Dates: start: 20210514

REACTIONS (3)
  - Malaise [Unknown]
  - Vaginal infection [Recovered/Resolved]
  - Helicobacter gastritis [Not Recovered/Not Resolved]

NARRATIVE: CASE EVENT DATE: 20210629
